FAERS Safety Report 4263604-5 (Version None)
Quarter: 2004Q1

REPORT INFORMATION
  Report Type: 
  Country: None (occurrence: None)
  Receive Date: 20040102
  Receipt Date: 20031219
  Transmission Date: 20041129
  Serious: Yes (Death, Life-Threatening, Hospitalization, Disabling)
  Sender: FDA-Public Use
  Company Number: 2003AP04443

PATIENT
  Age: 74 Year
  Sex: Male

DRUGS (6)
  1. IRESSA [Suspect]
     Indication: NEOPLASM
  2. IRESSA [Suspect]
     Indication: PANCREATIC CARCINOMA
  3. GLURENORM ^BOEHRINGER^ [Concomitant]
  4. MEBEVERINE [Concomitant]
  5. DOCALLOPU [Concomitant]
  6. LASIX [Concomitant]

REACTIONS (7)
  - ABDOMINAL PAIN [None]
  - DIARRHOEA [None]
  - HEPATIC FAILURE [None]
  - NEOPLASM PROGRESSION [None]
  - POLYURIA [None]
  - RENAL FAILURE ACUTE [None]
  - TUMOUR LYSIS SYNDROME [None]
